FAERS Safety Report 5563478-6 (Version None)
Quarter: 2007Q4

REPORT INFORMATION
  Report Type: 
  Country: None (occurrence: None)
  Receive Date: 20071217
  Receipt Date: 20071210
  Transmission Date: 20080405
  Serious: Yes (Other)
  Sender: FDA-Public Use
  Company Number: US-ASTRAZENECA-2007UW28233

PATIENT
  Age: 81 Year
  Sex: Male

DRUGS (2)
  1. NEXIUM [Suspect]
     Indication: DYSPEPSIA
     Dosage: SAMPLES
     Route: 048
     Dates: start: 20071101, end: 20071101
  2. NEXIUM [Suspect]
     Route: 048
     Dates: start: 20071206, end: 20071207

REACTIONS (1)
  - RECTAL HAEMORRHAGE [None]
